FAERS Safety Report 6014614-9 (Version None)
Quarter: 2008Q4

REPORT INFORMATION
  Report Type: 
  Country: None (occurrence: None)
  Receive Date: 20081219
  Receipt Date: 20080919
  Transmission Date: 20090506
  Serious: No
  Sender: FDA-Public Use
  Company Number: A0748389A

PATIENT
  Age: 75 Year
  Sex: Male

DRUGS (6)
  1. AVODART [Suspect]
     Indication: BENIGN PROSTATIC HYPERPLASIA
     Dosage: .5MG PER DAY
     Route: 048
     Dates: start: 20080820
  2. FLOMAX [Concomitant]
  3. NORVASC [Concomitant]
  4. PRILOSEC [Concomitant]
  5. ZOCOR [Concomitant]
  6. NADOLOL [Concomitant]

REACTIONS (2)
  - DIZZINESS [None]
  - ERECTILE DYSFUNCTION [None]
